FAERS Safety Report 14846614 (Version 1)
Quarter: 2018Q2

REPORT INFORMATION
  Report Type: Spontaneous
  Country: US (occurrence: US)
  Receive Date: 20180419
  Receipt Date: 20180419
  Transmission Date: 20180711
  Serious: Yes (Disabling)
  Sender: FDA-Public Use
  Company Number: None

PATIENT
  Age: 42 Year
  Sex: Male
  Weight: 74.25 kg

DRUGS (1)
  1. ZOLPIDEM TATRATE [Suspect]
     Active Substance: ZOLPIDEM TARTRATE
     Indication: INSOMNIA
     Dosage: ?          QUANTITY:1 CAPSULE(S);?
     Route: 048

REACTIONS (17)
  - Myalgia [None]
  - Anxiety [None]
  - Muscular weakness [None]
  - Withdrawal syndrome [None]
  - Paraesthesia [None]
  - Micturition urgency [None]
  - Nausea [None]
  - Asthenia [None]
  - Pollakiuria [None]
  - Dizziness [None]
  - Insomnia [None]
  - Dysphagia [None]
  - Oropharyngeal pain [None]
  - Hypoaesthesia [None]
  - Gastrooesophageal reflux disease [None]
  - Abdominal pain upper [None]
  - Muscle twitching [None]

NARRATIVE: CASE EVENT DATE: 20150501
